FAERS Safety Report 24579743 (Version 2)
Quarter: 2025Q4

REPORT INFORMATION
  Report Type: Spontaneous
  Country: BR (occurrence: BR)
  Receive Date: 20241105
  Receipt Date: 20251204
  Transmission Date: 20260117
  Serious: Yes (Other)
  Sender: SANDOZ
  Company Number: BR-SANDOZ-SDZ2024BR090648

PATIENT
  Sex: Female

DRUGS (3)
  1. ATENOLOL [Suspect]
     Active Substance: ATENOLOL
     Indication: Product used for unknown indication
     Dosage: 25 MG
     Route: 065
  2. KESIMPTA [Suspect]
     Active Substance: OFATUMUMAB
     Indication: Multiple sclerosis
     Dosage: UNK
     Route: 065
     Dates: start: 20240115
  3. LOSARTAN [Suspect]
     Active Substance: LOSARTAN
     Indication: Product used for unknown indication
     Dosage: 50 MG
     Route: 065

REACTIONS (6)
  - Arrhythmia [Unknown]
  - Condition aggravated [Unknown]
  - Blood pressure fluctuation [Recovering/Resolving]
  - Loss of consciousness [Unknown]
  - Cognitive disorder [Unknown]
  - COVID-19 [Unknown]
